FAERS Safety Report 8820347 (Version 1)
Quarter: 2012Q4

REPORT INFORMATION
  Report Type: 
  Country: US (occurrence: US)
  Receive Date: 20121002
  Receipt Date: 20121002
  Transmission Date: 20130627
  Serious: No
  Sender: FDA-Public Use
  Company Number: US-009507513-1209USA009312

PATIENT
  Sex: Female

DRUGS (6)
  1. JANUVIA [Suspect]
     Indication: DIABETES MELLITUS
     Dosage: 100 mg, qd
     Route: 048
     Dates: start: 2009
  2. NEXIUM [Concomitant]
  3. BENICAR [Concomitant]
  4. VERAPAMIL [Concomitant]
  5. OXYBUTYNIN [Concomitant]
  6. LEXAPRO [Concomitant]

REACTIONS (3)
  - Renal cyst [Not Recovered/Not Resolved]
  - Bacterial infection [Not Recovered/Not Resolved]
  - Kidney infection [Not Recovered/Not Resolved]
